FAERS Safety Report 13647651 (Version 1)
Quarter: 2017Q2

REPORT INFORMATION
  Report Type: Spontaneous
  Country: FR (occurrence: FR)
  Receive Date: 20170613
  Receipt Date: 20170613
  Transmission Date: 20170830
  Serious: Yes (Death, Life-Threatening)
  Sender: FDA-Public Use
  Company Number: FR-FRESENIUS KABI-FK201705050

PATIENT

DRUGS (3)
  1. CIDOFOVIR. [Suspect]
     Active Substance: CIDOFOVIR
     Indication: VIRAL HAEMORRHAGIC CYSTITIS
     Route: 042
  2. FOSCARNET [Suspect]
     Active Substance: FOSCARNET
     Indication: VIRAL HAEMORRHAGIC CYSTITIS
     Route: 065
  3. GANCICLOVIR FOR INJECTION (MANUFACTURER UNKNOWN) [Suspect]
     Active Substance: GANCICLOVIR
     Indication: VIRAL HAEMORRHAGIC CYSTITIS
     Route: 065

REACTIONS (4)
  - Coma uraemic [Unknown]
  - Acidosis hyperchloraemic [Unknown]
  - Multiple organ dysfunction syndrome [Fatal]
  - Acute kidney injury [Not Recovered/Not Resolved]
